FAERS Safety Report 8481642-3 (Version None)
Quarter: 2012Q3

REPORT INFORMATION
  Report Type: 
  Country: None (occurrence: None)
  Receive Date: 20120702
  Receipt Date: 20120621
  Transmission Date: 20120928
  Serious: Yes (Other)
  Sender: FDA-Public Use
  Company Number: US-ASTRAZENECA-2012SE42089

PATIENT
  Sex: Male

DRUGS (2)
  1. PRILOSEC OTC [Suspect]
     Route: 048
  2. NEXIUM [Suspect]
     Route: 048

REACTIONS (4)
  - APHAGIA [None]
  - DRUG DOSE OMISSION [None]
  - GASTROINTESTINAL ULCER PERFORATION [None]
  - DRUG INEFFECTIVE [None]
